FAERS Safety Report 9724608 (Version 1)
Quarter: 2013Q4

REPORT INFORMATION
  Report Type: Report from Study
  Country: FR (occurrence: FR)
  Receive Date: 20131202
  Receipt Date: 20131202
  Transmission Date: 20140711
  Serious: Yes (Death)
  Sender: FDA-Public Use
  Company Number: FR-SA-2013SA124572

PATIENT
  Age: 82 Year
  Sex: Female

DRUGS (6)
  1. CAMPATH [Suspect]
     Indication: CHRONIC LYMPHOCYTIC LEUKAEMIA
     Route: 058
     Dates: start: 20130527, end: 20130621
  2. AMLOR [Concomitant]
     Indication: ANGINA PECTORIS
     Route: 065
  3. KARDEGIC [Concomitant]
     Indication: ANGINA PECTORIS
     Route: 065
  4. LASILIX [Concomitant]
     Indication: ANGINA PECTORIS
     Route: 065
  5. INEXIUM [Concomitant]
     Route: 065
  6. ZELITREX [Concomitant]
     Indication: HERPES ZOSTER
     Route: 065

REACTIONS (4)
  - General physical health deterioration [Fatal]
  - Treatment failure [Fatal]
  - Abdominal pain [Unknown]
  - Dyspnoea [Unknown]
